FAERS Safety Report 18439224 (Version 1)
Quarter: 2020Q4

REPORT INFORMATION
  Report Type: Spontaneous
  Country: US (occurrence: US)
  Receive Date: 20201029
  Receipt Date: 20201029
  Transmission Date: 20210114
  Serious: No
  Sender: FDA-Public Use
  Company Number: US-AUROBINDO-AUR-APL-2020-027719

PATIENT
  Sex: Female

DRUGS (1)
  1. CARVEDILOL TABLETS 6.25 MG [Suspect]
     Active Substance: CARVEDILOL
     Indication: HYPOTENSION
     Dosage: 6.25 MILLIGRAM, TWO TIMES A DAY (ONE IN THE MORNING AND ONE IN THE AFTERNOON)
     Route: 065

REACTIONS (3)
  - Product physical issue [Unknown]
  - Throat irritation [Not Recovered/Not Resolved]
  - Back pain [Not Recovered/Not Resolved]

NARRATIVE: CASE EVENT DATE: 20200513
